FAERS Safety Report 7134543-7 (Version None)
Quarter: 2010Q4

REPORT INFORMATION
  Report Type: 
  Country: None (occurrence: None)
  Receive Date: 20101130
  Receipt Date: 20101130
  Transmission Date: 20110411
  Serious: Yes (Other)
  Sender: FDA-Public Use
  Company Number: None

PATIENT
  Sex: Male
  Weight: 23.3 kg

DRUGS (3)
  1. VYVANSE [Suspect]
     Indication: ATTENTION DEFICIT/HYPERACTIVITY DISORDER
     Dosage: 1 EVERY MORNING PO
     Route: 048
     Dates: start: 20101117, end: 20101117
  2. AMPHETAMINE AND DEXTROAMPHETAMINE SALTS [Concomitant]
  3. ADDERALL XR 10 [Concomitant]

REACTIONS (5)
  - ANGER [None]
  - CRYING [None]
  - LOGORRHOEA [None]
  - PALLOR [None]
  - PANIC ATTACK [None]
